FAERS Safety Report 21376660 (Version 1)
Quarter: 2022Q3

REPORT INFORMATION
  Report Type: Spontaneous
  Country: CA (occurrence: CA)
  Receive Date: 20220926
  Receipt Date: 20220926
  Transmission Date: 20221027
  Serious: Yes (Other)
  Sender: FDA-Public Use
  Company Number: CA-BAYER-2022A129870

PATIENT
  Age: 23 Year
  Sex: Female

DRUGS (4)
  1. REGORAFENIB [Suspect]
     Active Substance: REGORAFENIB
     Indication: Gastrointestinal stromal tumour
     Dosage: 160 MG
     Dates: start: 202101
  2. REGORAFENIB [Suspect]
     Active Substance: REGORAFENIB
     Indication: Gastrointestinal stromal tumour
     Dosage: 40 MG
  3. RIPRETINIB [Concomitant]
     Active Substance: RIPRETINIB
     Dosage: 150 MG, QD
     Dates: start: 202102, end: 202107
  4. RIPRETINIB [Concomitant]
     Active Substance: RIPRETINIB
     Dosage: 150 MG, BID

REACTIONS (3)
  - Gastrointestinal stromal tumour [None]
  - Rash morbilliform [Recovered/Resolved]
  - Rash morbilliform [None]
